FAERS Safety Report 19651589 (Version 1)
Quarter: 2021Q3

REPORT INFORMATION
  Report Type: Spontaneous
  Country: US (occurrence: US)
  Receive Date: 20210803
  Receipt Date: 20210803
  Transmission Date: 20211014
  Serious: Yes (Hospitalization, Other)
  Sender: FDA-Public Use
  Company Number: US-GLAXOSMITHKLINE-US2021161158

PATIENT
  Sex: Female

DRUGS (1)
  1. ZEJULA [Suspect]
     Active Substance: NIRAPARIB
     Indication: OVARIAN CANCER
     Dosage: 100 MG, QD
     Route: 048
     Dates: start: 20210628

REACTIONS (5)
  - Blood pressure decreased [Unknown]
  - Carbohydrate antigen 125 increased [Recovering/Resolving]
  - Haemoglobin decreased [Unknown]
  - Loss of consciousness [Unknown]
  - Platelet count decreased [Unknown]
